FAERS Safety Report 14317343 (Version 1)
Quarter: 2017Q4

REPORT INFORMATION
  Report Type: Report from Study
  Country: US (occurrence: US)
  Receive Date: 20171222
  Receipt Date: 20171222
  Transmission Date: 20180321
  Serious: Yes (Other)
  Sender: FDA-Public Use
  Company Number: US-JNJFOC-20171227015

PATIENT
  Sex: Male

DRUGS (21)
  1. VITAMIN C [Concomitant]
     Active Substance: ASCORBIC ACID
  2. SPIRIVA [Concomitant]
     Active Substance: TIOTROPIUM BROMIDE MONOHYDRATE
  3. LOSARTAN. [Concomitant]
     Active Substance: LOSARTAN
  4. ADVAIR HFA [Concomitant]
     Active Substance: FLUTICASONE PROPIONATE\SALMETEROL XINAFOATE
  5. FLOMAX [Concomitant]
     Active Substance: TAMSULOSIN HYDROCHLORIDE
  6. SALBUTAMOL SULFATE [Concomitant]
     Active Substance: ALBUTEROL SULFATE
  7. TRIAMCINOLONE [Concomitant]
     Active Substance: TRIAMCINOLONE
  8. GLUCOSAMINE [Concomitant]
     Active Substance: GLUCOSAMINE
  9. ZINC. [Concomitant]
     Active Substance: ZINC
  10. SAW PALMETTO [Concomitant]
     Active Substance: HERBALS\SAW PALMETTO
  11. IMBRUVICA [Suspect]
     Active Substance: IBRUTINIB
     Indication: CHRONIC LYMPHOCYTIC LEUKAEMIA
     Route: 048
     Dates: start: 20170901
  12. BIFIDOBACTERIUM LACTIS [Concomitant]
     Active Substance: BIFIDOBACTERIUM ANIMALIS LACTIS
  13. TOCOPHEROL [Concomitant]
     Active Substance: TOCOPHEROL
  14. ALLOPURINOL. [Concomitant]
     Active Substance: ALLOPURINOL
  15. NIFEDIPINE. [Concomitant]
     Active Substance: NIFEDIPINE
  16. PRAVASTATIN. [Concomitant]
     Active Substance: PRAVASTATIN
  17. VITAMIN D [Concomitant]
     Active Substance: CHOLECALCIFEROL
  18. MULTIVITAMINS [Concomitant]
     Active Substance: VITAMINS
  19. SINGULAIR [Concomitant]
     Active Substance: MONTELUKAST SODIUM
  20. MAGNESIUM [Concomitant]
     Active Substance: MAGNESIUM
  21. ALBUTEROL. [Concomitant]
     Active Substance: ALBUTEROL

REACTIONS (2)
  - Epistaxis [Unknown]
  - Nasal septum perforation [Unknown]
